FAERS Safety Report 9981929 (Version 1)
Quarter: 2014Q1

REPORT INFORMATION
  Report Type: Report from Study
  Country: US (occurrence: US)
  Receive Date: 20140307
  Receipt Date: 20140307
  Transmission Date: 20141002
  Serious: No
  Sender: FDA-Public Use
  Company Number: US-ABBVIE-13P-163-1181676-00

PATIENT
  Age: 37 Year
  Sex: Male

DRUGS (10)
  1. HUMIRA [Suspect]
     Indication: COLITIS ULCERATIVE
     Dates: start: 201308
  2. HUMIRA [Suspect]
     Dates: start: 201310
  3. 6-MP [Concomitant]
     Indication: COLITIS ULCERATIVE
  4. MULTIPLE VITAMINS [Concomitant]
     Indication: PRODUCT USED FOR UNKNOWN INDICATION
  5. FISH OIL [Concomitant]
     Indication: PRODUCT USED FOR UNKNOWN INDICATION
  6. CALCIUM [Concomitant]
     Indication: PRODUCT USED FOR UNKNOWN INDICATION
  7. VITAMIN B COMPLEX [Concomitant]
     Indication: PRODUCT USED FOR UNKNOWN INDICATION
  8. FOLIC ACID [Concomitant]
     Indication: PRODUCT USED FOR UNKNOWN INDICATION
  9. TRIAMTERENE [Concomitant]
     Indication: TINNITUS
  10. PREDNISONE [Concomitant]
     Indication: PRODUCT USED FOR UNKNOWN INDICATION
     Dosage: TAPERING OFF 5 MG EACH WEEK
     Dates: start: 201310

REACTIONS (1)
  - Colitis [Recovering/Resolving]
